FAERS Safety Report 8107955-2 (Version None)
Quarter: 2012Q1

REPORT INFORMATION
  Report Type: 
  Country: None (occurrence: None)
  Receive Date: 20120202
  Receipt Date: 20120116
  Transmission Date: 20120608
  Serious: Yes (Other)
  Sender: FDA-Public Use
  Company Number: DE-ROCHE-1035897

PATIENT
  Age: 67 Year

DRUGS (1)
  1. MABTHERA [Suspect]
     Indication: KIDNEY TRANSPLANT REJECTION

REACTIONS (2)
  - PULMONARY EMBOLISM [None]
  - PNEUMONIA [None]
